FAERS Safety Report 4935420-X (Version None)
Quarter: 2006Q1

REPORT INFORMATION
  Report Type: 
  Country: None (occurrence: None)
  Receive Date: 20060307
  Receipt Date: 20060214
  Transmission Date: 20060701
  Serious: Yes (Hospitalization)
  Sender: FDA-Public Use
  Company Number: ES-GLAXOSMITHKLINE-B0412738A

PATIENT
  Age: 47 Year
  Sex: Male

DRUGS (4)
  1. ABACAVIR [Suspect]
     Indication: HIV INFECTION
     Route: 048
     Dates: start: 20051228, end: 20060120
  2. EFAVIRENZ [Concomitant]
     Indication: HIV INFECTION
     Route: 048
     Dates: start: 20051228, end: 20060120
  3. TENOFOVIR [Concomitant]
     Indication: HIV INFECTION
     Route: 048
     Dates: start: 20051228, end: 20060120
  4. ENFUVIRTIDE [Concomitant]
     Indication: HIV INFECTION
     Route: 058
     Dates: start: 20051228, end: 20060120

REACTIONS (9)
  - ASTHENIA [None]
  - DRUG HYPERSENSITIVITY [None]
  - HAEMOPTYSIS [None]
  - LIVER FUNCTION TEST ABNORMAL [None]
  - MALAISE [None]
  - MYALGIA [None]
  - PROSTATITIS [None]
  - PULMONARY HAEMORRHAGE [None]
  - PYREXIA [None]
